FAERS Safety Report 17834305 (Version 1)
Quarter: 2020Q2

REPORT INFORMATION
  Report Type: Spontaneous
  Country: US (occurrence: US)
  Receive Date: 20200528
  Receipt Date: 20200528
  Transmission Date: 20200714
  Serious: Yes (Hospitalization)
  Sender: FDA-Public Use
  Company Number: None

PATIENT
  Age: 85 Year
  Sex: Female

DRUGS (11)
  1. LOSARTAN. [Concomitant]
     Active Substance: LOSARTAN
     Dates: start: 20191226
  2. OMEPRAZOLE. [Concomitant]
     Active Substance: OMEPRAZOLE
     Dates: start: 20200326
  3. FOLIC ACID. [Concomitant]
     Active Substance: FOLIC ACID
     Dates: start: 20200113
  4. METHOTREXATE. [Concomitant]
     Active Substance: METHOTREXATE
     Dates: start: 20200401
  5. CELECOXIB. [Concomitant]
     Active Substance: CELECOXIB
     Dates: start: 20200113
  6. CLOPIDOGREL [Concomitant]
     Active Substance: CLOPIDOGREL BISULFATE
     Dates: start: 20200221
  7. DIGOXIN. [Concomitant]
     Active Substance: DIGOXIN
     Dates: start: 20200223
  8. DILTIAZEM. [Concomitant]
     Active Substance: DILTIAZEM
     Dates: start: 20200312
  9. OXYCODONE AND ACETAMINOPHEN [Concomitant]
     Active Substance: ACETAMINOPHEN\OXYCODONE HYDROCHLORIDE
     Dates: start: 20200401
  10. ENBREL [Suspect]
     Active Substance: ETANERCEPT
     Indication: RHEUMATOID ARTHRITIS
     Dosage: ?          OTHER FREQUENCY:WEEKLY;?
     Route: 058
     Dates: start: 20180921
  11. FUROSEMIDE. [Concomitant]
     Active Substance: FUROSEMIDE
     Dates: start: 20191226

REACTIONS (3)
  - Therapy interrupted [None]
  - Pneumonia [None]
  - Pain in extremity [None]

NARRATIVE: CASE EVENT DATE: 20200527
